FAERS Safety Report 21437273 (Version 4)
Quarter: 2022Q4

REPORT INFORMATION
  Report Type: Report from Study
  Country: US (occurrence: US)
  Receive Date: 20221010
  Receipt Date: 20221220
  Transmission Date: 20230113
  Serious: Yes (Other)
  Sender: FDA-Public Use
  Company Number: US-ABBVIE-22K-163-4423323-00

PATIENT
  Sex: Female

DRUGS (4)
  1. HUMIRA [Suspect]
     Active Substance: ADALIMUMAB
     Indication: Ankylosing spondylitis
     Dosage: CITRATE FREE, FORM STRENGTH: 40 MG
     Route: 058
     Dates: start: 20210920, end: 202203
  2. HUMIRA [Suspect]
     Active Substance: ADALIMUMAB
     Dosage: CITRATE FREE, FORM STRENGTH: 40 MG
     Route: 058
     Dates: start: 2022, end: 202209
  3. HUMIRA [Suspect]
     Active Substance: ADALIMUMAB
     Dosage: CITRATE FREE, FORM STRENGTH: 40 MG?DRUG END DATE: 2022
     Route: 058
     Dates: start: 20220927
  4. HUMIRA [Suspect]
     Active Substance: ADALIMUMAB
     Dosage: CITRATE FREE, FORM STRENGTH: 40 MG?DRUG START DATE: 2022
     Route: 058

REACTIONS (20)
  - Ankle operation [Unknown]
  - Injection site bruising [Unknown]
  - Visual impairment [Not Recovered/Not Resolved]
  - Product preparation error [Unknown]
  - Headache [Unknown]
  - Dizziness [Unknown]
  - Joint range of motion decreased [Recovering/Resolving]
  - Mobility decreased [Recovering/Resolving]
  - Dysstasia [Recovering/Resolving]
  - Loss of personal independence in daily activities [Unknown]
  - Product dose omission in error [Unknown]
  - Inappropriate schedule of product administration [Unknown]
  - Nausea [Unknown]
  - Injection site pain [Unknown]
  - Discomfort [Recovering/Resolving]
  - Injection site bruising [Unknown]
  - Incorrect dose administered [Unknown]
  - Ankylosing spondylitis [Unknown]
  - Tendon dislocation [Unknown]
  - Mobility decreased [Not Recovered/Not Resolved]

NARRATIVE: CASE EVENT DATE: 20220101
